FAERS Safety Report 12696496 (Version 1)
Quarter: 2016Q3

REPORT INFORMATION
  Report Type: Spontaneous
  Country: US (occurrence: US)
  Receive Date: 20160830
  Receipt Date: 20160830
  Transmission Date: 20161109
  Serious: No
  Sender: FDA-Public Use
  Company Number: US-LEO PHARMA-243656

PATIENT
  Age: 50 Year
  Sex: Female

DRUGS (1)
  1. PICATO [Suspect]
     Active Substance: INGENOL MEBUTATE
     Indication: SKIN CANCER
     Route: 061
     Dates: start: 20160819, end: 20160821

REACTIONS (9)
  - Application site pain [Recovering/Resolving]
  - Application site discomfort [Not Recovered/Not Resolved]
  - Headache [Recovering/Resolving]
  - Application site discharge [Unknown]
  - Eye swelling [Not Recovered/Not Resolved]
  - Application site exfoliation [Not Recovered/Not Resolved]
  - Product use issue [Unknown]
  - Application site pruritus [Not Recovered/Not Resolved]
  - Application site pustules [Unknown]

NARRATIVE: CASE EVENT DATE: 20160819
